FAERS Safety Report 6257084-8 (Version None)
Quarter: 2009Q3

REPORT INFORMATION
  Report Type: 
  Country: None (occurrence: None)
  Receive Date: 20090706
  Receipt Date: 20090626
  Transmission Date: 20100115
  Serious: Yes (Hospitalization)
  Sender: FDA-Public Use
  Company Number: B0578683A

PATIENT
  Age: 64 Year
  Sex: Male

DRUGS (5)
  1. ARIXTRA [Suspect]
     Indication: ACUTE CORONARY SYNDROME
     Dosage: 2.5MG PER DAY
     Route: 058
     Dates: start: 20090522, end: 20090524
  2. WARFARIN [Suspect]
     Dosage: 3MGH PER DAY
     Route: 065
     Dates: start: 20090522, end: 20090524
  3. ASPIRIN [Concomitant]
     Dosage: 60MG PER DAY
     Route: 065
     Dates: start: 20080103, end: 20090524
  4. CLOPIDOGREL [Concomitant]
     Route: 065
     Dates: start: 20090522, end: 20090524
  5. WARFARIN [Concomitant]
     Dosage: 3MG PER DAY
     Dates: start: 20090526, end: 20090601

REACTIONS (2)
  - HAEMATURIA [None]
  - INTERNATIONAL NORMALISED RATIO INCREASED [None]
